FAERS Safety Report 9463154 (Version 3)
Quarter: 2013Q3

REPORT INFORMATION
  Report Type: Spontaneous
  Country: HK (occurrence: HK)
  Receive Date: 20130817
  Receipt Date: 20130904
  Transmission Date: 20140515
  Serious: Yes (Hospitalization, Other)
  Sender: FDA-Public Use
  Company Number: HK-ROCHE-1262251

PATIENT
  Age: 67 Year
  Sex: Female

DRUGS (1)
  1. AVASTIN [Suspect]
     Indication: COLORECTAL CANCER METASTATIC
     Dosage: LAST DOSE PRIOR TO SAE ON 05/AUG/2013.
     Route: 042

REACTIONS (3)
  - Gastrointestinal obstruction [Recovering/Resolving]
  - Angiopathy [Unknown]
  - Abdominal pain [Unknown]
